FAERS Safety Report 9186974 (Version 2)
Quarter: 2012Q4

REPORT INFORMATION
  Report Type: 
  Country: US (occurrence: US)
  Receive Date: 20121106
  Receipt Date: 20121119
  Transmission Date: 20130627
  Serious: Yes (Other)
  Sender: FDA-Public Use
  Company Number: US-RB-046323-12

PATIENT
  Age: 15 Year
  Sex: Male

DRUGS (4)
  1. MUCINEX [Suspect]
     Indication: PRODUCT USED FOR UNKNOWN INDICATION
     Route: 048
     Dates: start: 20121030
  2. Z-PACK-ZITHROM [Suspect]
     Indication: PRODUCT USED FOR UNKNOWN INDICATION
  3. CLARITIN [Concomitant]
     Indication: PRODUCT USED FOR UNKNOWN INDICATION
  4. SINGULAR [Concomitant]
     Indication: PRODUCT USED FOR UNKNOWN INDICATION

REACTIONS (7)
  - Lip swelling [Recovered/Resolved]
  - Lip haemorrhage [Recovered/Resolved]
  - Rash [Recovered/Resolved]
  - Tongue discolouration [Recovered/Resolved]
  - Nail discolouration [Recovered/Resolved]
  - Swollen tongue [Recovered/Resolved]
  - Erythema [Recovered/Resolved]
